FAERS Safety Report 6884759-X (Version None)
Quarter: 2010Q3

REPORT INFORMATION
  Report Type: 
  Country: None (occurrence: None)
  Receive Date: 20100729
  Receipt Date: 20070907
  Transmission Date: 20110219
  Serious: No
  Sender: FDA-Public Use
  Company Number: US-PFIZER INC-2007062284

PATIENT
  Sex: Male

DRUGS (1)
  1. CELEBREX [Suspect]

REACTIONS (6)
  - DIZZINESS [None]
  - DRUG INTOLERANCE [None]
  - EUPHORIC MOOD [None]
  - FEELING ABNORMAL [None]
  - THINKING ABNORMAL [None]
  - UNEVALUABLE EVENT [None]
